FAERS Safety Report 13644515 (Version 1)
Quarter: 2017Q2

REPORT INFORMATION
  Report Type: Spontaneous
  Country: US (occurrence: US)
  Receive Date: 20170612
  Receipt Date: 20170612
  Transmission Date: 20170830
  Serious: No
  Sender: FDA-Public Use
  Company Number: US-ROCHE-1009955

PATIENT
  Sex: Male
  Weight: 70.5 kg

DRUGS (3)
  1. XELODA [Suspect]
     Active Substance: CAPECITABINE
     Indication: COLON CANCER
     Dosage: 1500 MG IN MORNING
     Route: 048
     Dates: start: 20111020, end: 20111023
  2. EMEND [Concomitant]
     Active Substance: APREPITANT
  3. XELODA [Suspect]
     Active Substance: CAPECITABINE
     Dosage: 2000 MG IN EVENING
     Route: 048
     Dates: start: 20111020, end: 20111023

REACTIONS (4)
  - Hiccups [Unknown]
  - Abdominal pain [Unknown]
  - Lip swelling [Unknown]
  - Nausea [Unknown]
